FAERS Safety Report 7327051-1 (Version None)
Quarter: 2011Q1

REPORT INFORMATION
  Report Type: 
  Country: None (occurrence: None)
  Receive Date: 20110302
  Receipt Date: 20110222
  Transmission Date: 20110831
  Serious: Yes (Death)
  Sender: FDA-Public Use
  Company Number: US-BAXTER-2011BH004455

PATIENT
  Age: 10 Year
  Sex: Male

DRUGS (3)
  1. FEIBA VH [Suspect]
     Indication: FACTOR VIII DEFICIENCY
     Route: 065
  2. RECOMBINANT FACTOR VIIA [Suspect]
     Indication: FACTOR VIII DEFICIENCY
     Dosage: DOSE UNIT:UNITS PER KILOGRAM
     Route: 065
  3. ANTIHEMOPHILIC FACTOR (HUMAN) [Concomitant]
     Indication: FACTOR VIII DEFICIENCY
     Route: 065

REACTIONS (1)
  - CEREBRAL HAEMATOMA [None]
